FAERS Safety Report 22333906 (Version 1)
Quarter: 2023Q2

REPORT INFORMATION
  Report Type: Spontaneous
  Country: US (occurrence: US)
  Receive Date: 20230517
  Receipt Date: 20230517
  Transmission Date: 20230722
  Serious: No
  Sender: FDA-Public Use
  Company Number: US-AIMMUNE THERAPEUTICS, INC.-2022AIMT02819

PATIENT

DRUGS (5)
  1. PALFORZIA [Suspect]
     Active Substance: PEANUT
     Indication: Food allergy
     Dosage: IDE (0.5MG-6MG), ONCE
     Route: 048
     Dates: start: 202111, end: 202111
  2. PALFORZIA [Suspect]
     Active Substance: PEANUT
     Dosage: 300 MG, 1X/DAY
     Route: 048
     Dates: start: 202210, end: 2022
  3. PALFORZIA [Suspect]
     Active Substance: PEANUT
     Dosage: 300 MG, ONCE, LAST DOSE PRIOR EVENT
     Route: 048
     Dates: start: 20221031, end: 20221031
  4. PALFORZIA [Suspect]
     Active Substance: PEANUT
     Dosage: 150 MG, 1X/DAY, DOSE DECREASED
     Route: 048
     Dates: start: 202210, end: 202210
  5. PALFORZIA [Suspect]
     Active Substance: PEANUT
     Dosage: 300 MG, 1X/DAY, DOSE LEVEL RESTARTED
     Route: 048
     Dates: start: 2022

REACTIONS (3)
  - Hypersensitivity [Recovered/Resolved]
  - Cough [Recovered/Resolved]
  - Urticaria [Recovered/Resolved]

NARRATIVE: CASE EVENT DATE: 20221031
